FAERS Safety Report 8840023 (Version 3)
Quarter: 2014Q2

REPORT INFORMATION
  Report Type: Spontaneous
  Country: US (occurrence: US)
  Receive Date: 20121015
  Receipt Date: 20131024
  Transmission Date: 20141212
  Serious: No
  Sender: FDA-Public Use
  Company Number: US-PFIZER INC-2012251640

PATIENT
  Sex: Female

DRUGS (6)
  1. DEPO-MEDROL [Suspect]
     Dosage: 80 MG, UNK
  2. DEPO-MEDROL [Suspect]
     Dosage: 40 MG, UNK
  3. MECLIZINE [Concomitant]
     Dosage: UNK
  4. LORTAB [Concomitant]
     Dosage: UNK
  5. COMPAZINE [Concomitant]
     Dosage: UNK
  6. DIAZEPAM [Concomitant]
     Dosage: UNK

REACTIONS (5)
  - Onychomycosis [Unknown]
  - Headache [Unknown]
  - Abdominal pain upper [Unknown]
  - Chills [Unknown]
  - Therapeutic response changed [Unknown]
